FAERS Safety Report 12784817 (Version 2)
Quarter: 2016Q4

REPORT INFORMATION
  Report Type: Report from Study
  Country: IN (occurrence: IN)
  Receive Date: 20160927
  Receipt Date: 20161012
  Transmission Date: 20170207
  Serious: Yes (Hospitalization)
  Sender: FDA-Public Use
  Company Number: IN-IPCA LABORATORIES LIMITED-IPC201609-000817

PATIENT
  Age: 46 Year
  Sex: Male
  Weight: 69.4 kg

DRUGS (8)
  1. SOMPRAZ-D [Concomitant]
     Indication: ACIDOSIS
     Route: 048
     Dates: start: 20160920
  2. DEXORANGE [Concomitant]
     Indication: ANAEMIA
     Route: 048
     Dates: start: 20160920
  3. SOMPRAZ-D [Concomitant]
     Dates: start: 20160923
  4. GLYREE [Suspect]
     Active Substance: GLIMEPIRIDE
     Route: 048
     Dates: start: 20160923
  5. GLYREE [Suspect]
     Active Substance: GLIMEPIRIDE
     Route: 048
     Dates: start: 20160926
  6. GLYREE [Suspect]
     Active Substance: GLIMEPIRIDE
     Indication: DIABETES MELLITUS
     Route: 048
     Dates: start: 20160707
  7. HYDROXYCHLOROQUINE SULFATE. [Suspect]
     Active Substance: HYDROXYCHLOROQUINE SULFATE
     Indication: DIABETES MELLITUS
     Route: 048
     Dates: start: 20160707, end: 20160916
  8. METFORMIN HYDROCHLORIDE. [Suspect]
     Active Substance: METFORMIN HYDROCHLORIDE
     Indication: DIABETES MELLITUS
     Route: 048
     Dates: start: 20160707, end: 20160916

REACTIONS (1)
  - Anaemia [Recovering/Resolving]

NARRATIVE: CASE EVENT DATE: 20160920
